FAERS Safety Report 8929195 (Version 1)
Quarter: 2012Q4

REPORT INFORMATION
  Report Type: 
  Country: US (occurrence: US)
  Receive Date: 20121128
  Receipt Date: 20121128
  Transmission Date: 20130627
  Serious: Yes (Disabling, Other)
  Sender: FDA-Public Use
  Company Number: US-SANOFI-AVENTIS-2012SA084921

PATIENT
  Age: 88 Year
  Sex: Female

DRUGS (3)
  1. LANTUS [Suspect]
     Dosage: Dose:60 unit(s)
     Route: 058
  2. NOVOLOG [Concomitant]
  3. ANTIHYPERTENSIVES [Concomitant]

REACTIONS (7)
  - Fall [Unknown]
  - Hip fracture [Unknown]
  - Arthropathy [Unknown]
  - Vomiting [Unknown]
  - Bursitis [Unknown]
  - Malaise [Unknown]
  - Blood glucose decreased [Recovered/Resolved]
